FAERS Safety Report 4664718-8 (Version None)
Quarter: 2005Q2

REPORT INFORMATION
  Report Type: 
  Country: None (occurrence: None)
  Receive Date: 20050516
  Receipt Date: 20050509
  Transmission Date: 20051028
  Serious: Yes (Hospitalization)
  Sender: FDA-Public Use
  Company Number: 805#1#2005-00042

PATIENT
  Age: 76 Year
  Sex: Male

DRUGS (3)
  1. ALPROSTADIL [Suspect]
     Indication: ATHEROSCLEROSIS OBLITERANS
     Dosage: (60MCG 2 IN 1 WEEK(S), INTRAVENOUS DRIP
     Route: 041
     Dates: start: 20040520, end: 20050418
  2. VALSARTAN [Concomitant]
  3. GLIBENCALMIDE (GLIBENCLAMIDE) [Concomitant]

REACTIONS (2)
  - INFLUENZA LIKE ILLNESS [None]
  - INTERSTITIAL LUNG DISEASE [None]
